FAERS Safety Report 12835631 (Version 3)
Quarter: 2016Q4

REPORT INFORMATION
  Report Type: Report from Study
  Country: US (occurrence: US)
  Receive Date: 20161011
  Receipt Date: 20161104
  Transmission Date: 20170207
  Serious: Yes (Other)
  Sender: FDA-Public Use
  Company Number: US-GILEAD-2016-0221428

PATIENT
  Age: 53 Year
  Sex: Female

DRUGS (25)
  1. SILDENAFIL. [Concomitant]
     Active Substance: SILDENAFIL
     Indication: PRODUCT USED FOR UNKNOWN INDICATION
     Route: 065
  2. BACLOFEN. [Concomitant]
     Active Substance: BACLOFEN
  3. ORPHENADRINE CITRATE. [Concomitant]
     Active Substance: ORPHENADRINE CITRATE
  4. DICLOFENAC POTASSIUM. [Concomitant]
     Active Substance: DICLOFENAC POTASSIUM
  5. WARFARIN SODIUM. [Concomitant]
     Active Substance: WARFARIN SODIUM
  6. OXYCODONE [Concomitant]
     Active Substance: OXYCODONE
  7. SPIRONOLACTONE. [Concomitant]
     Active Substance: SPIRONOLACTONE
  8. DIAZEPAM. [Concomitant]
     Active Substance: DIAZEPAM
  9. MAGNESIUM [Concomitant]
     Active Substance: MAGNESIUM
  10. MAXALT [Concomitant]
     Active Substance: RIZATRIPTAN BENZOATE
  11. DICLOFENAC [Concomitant]
     Active Substance: DICLOFENAC
  12. PANTOPRAZOLE SODIUM. [Concomitant]
     Active Substance: PANTOPRAZOLE SODIUM
  13. UPTRAVI [Suspect]
     Active Substance: SELEXIPAG
     Dosage: 600UG/400UG/400UG
     Route: 065
  14. PROPANOLOL                         /00030001/ [Concomitant]
     Active Substance: PROPRANOLOL HYDROCHLORIDE
  15. WARFARIN [Concomitant]
     Active Substance: WARFARIN
  16. AMBRISENTAN [Suspect]
     Active Substance: AMBRISENTAN
     Indication: PULMONARY ARTERIAL HYPERTENSION
     Dosage: 10 MG, QD
     Route: 065
     Dates: start: 20130117
  17. PREDNISONE. [Concomitant]
     Active Substance: PREDNISONE
  18. DOXEPIN [Concomitant]
     Active Substance: DOXEPIN
  19. PROPRANOLOL HCL [Concomitant]
     Active Substance: PROPRANOLOL HYDROCHLORIDE
  20. SULFADIAZINE. [Concomitant]
     Active Substance: SULFADIAZINE
  21. DOXEPIN HCL [Concomitant]
     Active Substance: DOXEPIN HYDROCHLORIDE
  22. UPTRAVI [Suspect]
     Active Substance: SELEXIPAG
     Indication: PULMONARY HYPERTENSION
     Dosage: UNK UG, TID
     Route: 065
     Dates: start: 20160616
  23. UPTRAVI [Suspect]
     Active Substance: SELEXIPAG
     Dosage: 1400 UG, ONCE
     Route: 065
     Dates: start: 20161006, end: 20161006
  24. ORPHENADRINE [Concomitant]
     Active Substance: ORPHENADRINE
  25. SYMBICORT [Concomitant]
     Active Substance: BUDESONIDE\FORMOTEROL FUMARATE DIHYDRATE

REACTIONS (14)
  - Migraine [Recovering/Resolving]
  - Headache [Recovered/Resolved]
  - Myalgia [Recovered/Resolved]
  - Accidental overdose [Recovered/Resolved]
  - Pain [Not Recovered/Not Resolved]
  - Paraesthesia oral [Recovered/Resolved]
  - Dizziness postural [Recovered/Resolved]
  - Confusional state [Recovered/Resolved]
  - Diarrhoea [Not Recovered/Not Resolved]
  - Nausea [Not Recovered/Not Resolved]
  - Consciousness fluctuating [Recovered/Resolved]
  - Palpitations [Recovering/Resolving]
  - Vomiting [Recovering/Resolving]
  - Flushing [Recovering/Resolving]

NARRATIVE: CASE EVENT DATE: 20160626
